FAERS Safety Report 8958677 (Version 1)
Quarter: 2012Q4

REPORT INFORMATION
  Report Type: Spontaneous
  Country: US (occurrence: None)
  Receive Date: 20121206
  Receipt Date: 20121206
  Transmission Date: 20130627
  Serious: Yes (Other)
  Sender: FDA-Public Use
  Company Number: None

PATIENT
  Age: 63 Year
  Sex: Male
  Weight: 88.45 kg

DRUGS (2)
  1. ATORVASTATIN 50 MG RANBAXY [Suspect]
     Indication: CORONARY ARTERY DISEASE
     Dosage: one- 1 - dayly
     Route: 048
     Dates: start: 20120912, end: 20121005
  2. ATORVASTATIN 50 MG RANBAXY [Suspect]
     Indication: BLOOD CHOLESTEROL INCREASED
     Dosage: one- 1 - dayly
     Route: 048
     Dates: start: 20120912, end: 20121005

REACTIONS (1)
  - Abdominal pain [None]
